FAERS Safety Report 6370942-9 (Version None)
Quarter: 2009Q3

REPORT INFORMATION
  Report Type: 
  Country: None (occurrence: None)
  Receive Date: 20090923
  Receipt Date: 20071128
  Transmission Date: 20100115
  Serious: Yes (Other)
  Sender: FDA-Public Use
  Company Number: US-ASTRAZENECA-2006UW22370

PATIENT
  Age: 26 Year
  Sex: Female
  Weight: 83.5 kg

DRUGS (9)
  1. SEROQUEL [Suspect]
     Indication: ANXIETY
     Dosage: 25 MG - 200 MG
     Route: 048
     Dates: start: 20010101, end: 20060101
  2. SEROQUEL [Suspect]
     Indication: DEPRESSION
     Dosage: 25 MG - 200 MG
     Route: 048
     Dates: start: 20010101, end: 20060101
  3. SEROQUEL [Suspect]
     Indication: BIPOLAR DISORDER
     Dosage: 25 MG - 200 MG
     Route: 048
     Dates: start: 20010101, end: 20060101
  4. SEROQUEL [Suspect]
     Dosage: 25 MG -300 MG
     Route: 048
     Dates: start: 20010625
  5. SEROQUEL [Suspect]
     Dosage: 25 MG -300 MG
     Route: 048
     Dates: start: 20010625
  6. SEROQUEL [Suspect]
     Dosage: 25 MG -300 MG
     Route: 048
     Dates: start: 20010625
  7. EFFEXOR XR [Concomitant]
     Dosage: 37.5 MG -300 MG
     Dates: start: 20010625
  8. LEVOTHYROXINE SODIUM [Concomitant]
     Dates: start: 20050102
  9. SIMVASTATIN [Concomitant]
     Route: 048
     Dates: start: 20070907

REACTIONS (3)
  - DIABETES MELLITUS [None]
  - DIABETES MELLITUS INADEQUATE CONTROL [None]
  - TYPE 2 DIABETES MELLITUS [None]
